FAERS Safety Report 11229351 (Version 1)
Quarter: 2015Q2

REPORT INFORMATION
  Report Type: Spontaneous
  Country: US (occurrence: US)
  Receive Date: 20150630
  Receipt Date: 20150630
  Transmission Date: 20150821
  Serious: No
  Sender: FDA-Public Use
  Company Number: US-ASTRAZENECA-2015SE60537

PATIENT
  Sex: Female
  Weight: 123.4 kg

DRUGS (1)
  1. BYDUREON [Suspect]
     Active Substance: EXENATIDE
     Route: 058

REACTIONS (7)
  - Abdominal pain [Unknown]
  - Glaucoma [Unknown]
  - Weight decreased [Unknown]
  - Hypophagia [Unknown]
  - Injection site mass [Unknown]
  - Panic reaction [Unknown]
  - Decreased appetite [Unknown]
